FAERS Safety Report 19675102 (Version 3)
Quarter: 2021Q3

REPORT INFORMATION
  Report Type: Spontaneous
  Country: CA (occurrence: CA)
  Receive Date: 20210809
  Receipt Date: 20210916
  Transmission Date: 20211014
  Serious: Yes (Life-Threatening, Hospitalization)
  Sender: FDA-Public Use
  Company Number: CA-ROCHE-2885600

PATIENT
  Age: 18 Year
  Sex: Female

DRUGS (10)
  1. VENLAFAXINE XR [Suspect]
     Active Substance: VENLAFAXINE HYDROCHLORIDE
     Indication: INTENTIONAL OVERDOSE
     Route: 048
  2. DIAZEPAM. [Suspect]
     Active Substance: DIAZEPAM
     Route: 048
  3. DIAZEPAM. [Suspect]
     Active Substance: DIAZEPAM
     Indication: PRODUCT USED FOR UNKNOWN INDICATION
     Route: 048
  4. FLUOXETINE HYDROCHLORIDE. [Suspect]
     Active Substance: FLUOXETINE HYDROCHLORIDE
     Indication: PRODUCT USED FOR UNKNOWN INDICATION
     Route: 048
  5. VENLAFAXINE XR [Suspect]
     Active Substance: VENLAFAXINE HYDROCHLORIDE
     Indication: BORDERLINE PERSONALITY DISORDER
  6. VENLAFAXINE HYDROCHLORIDE. [Suspect]
     Active Substance: VENLAFAXINE HYDROCHLORIDE
     Route: 065
  7. FLUOXETINE [Suspect]
     Active Substance: FLUOXETINE HYDROCHLORIDE
     Indication: INTENTIONAL OVERDOSE
     Route: 048
  8. DIAZEPAM. [Suspect]
     Active Substance: DIAZEPAM
     Route: 065
  9. VENLAFAXINE HYDROCHLORIDE. [Suspect]
     Active Substance: VENLAFAXINE HYDROCHLORIDE
     Indication: PRODUCT USED FOR UNKNOWN INDICATION
     Route: 048
  10. FLUOXETINE [Suspect]
     Active Substance: FLUOXETINE HYDROCHLORIDE
     Indication: BORDERLINE PERSONALITY DISORDER
     Route: 065

REACTIONS (20)
  - Obstructive airways disorder [Recovered/Resolved]
  - Cardiac dysfunction [Recovered/Resolved]
  - Acute kidney injury [Recovered/Resolved]
  - Cardiomyopathy [Recovered/Resolved]
  - Ejection fraction decreased [Recovered/Resolved]
  - Electrocardiogram QRS complex prolonged [Recovered/Resolved]
  - Electrocardiogram QT prolonged [Recovered/Resolved]
  - Intentional overdose [Unknown]
  - Hypotension [Recovered/Resolved]
  - Cardiotoxicity [Recovered/Resolved]
  - Seizure [Recovered/Resolved]
  - Blood lactic acid increased [Recovered/Resolved]
  - Liver injury [Recovered/Resolved]
  - Haemodynamic instability [Recovered/Resolved]
  - Hypoglycaemia [Recovered/Resolved]
  - Cardiac arrest [Recovered/Resolved]
  - Tachycardia [Recovered/Resolved]
  - Toxicity to various agents [Recovered/Resolved]
  - Somnolence [Unknown]
  - Pulseless electrical activity [Recovered/Resolved]
